FAERS Safety Report 7769888-0 (Version None)
Quarter: 2011Q3

REPORT INFORMATION
  Report Type: 
  Country: None (occurrence: None)
  Receive Date: 20110922
  Receipt Date: 20110915
  Transmission Date: 20111222
  Serious: Yes (Other)
  Sender: FDA-Public Use
  Company Number: BR-ROCHE-803547

PATIENT
  Sex: Male
  Weight: 85 kg

DRUGS (4)
  1. CARBOLITIUM [Concomitant]
     Route: 065
  2. CARBAMAZEPINE [Concomitant]
  3. CLONAZEPAM [Suspect]
     Indication: BIPOLAR DISORDER
     Dosage: START DATE: BEFORE SEP 2010.
     Route: 065
     Dates: start: 20100901
  4. RISPERIDONE [Concomitant]

REACTIONS (4)
  - DANDRUFF [None]
  - PRURITUS [None]
  - TREMOR [None]
  - OEDEMA PERIPHERAL [None]
